FAERS Safety Report 12215040 (Version 1)
Quarter: 2016Q1

REPORT INFORMATION
  Report Type: Spontaneous
  Country: US (occurrence: US)
  Receive Date: 20160328
  Receipt Date: 20160328
  Transmission Date: 20160526
  Serious: No
  Sender: FDA-Public Use
  Company Number: US-CELGENEUS-USA-2016036198

PATIENT
  Sex: Male
  Weight: 113.5 kg

DRUGS (2)
  1. IMMUNOGLOBULIN [Concomitant]
     Active Substance: HUMAN IMMUNOGLOBULIN G
     Indication: PLASMA CELL MYELOMA
     Route: 041
  2. REVLIMID [Suspect]
     Active Substance: LENALIDOMIDE
     Indication: PLASMA CELL MYELOMA
     Dosage: 25 MILLIGRAM
     Route: 048
     Dates: start: 201507, end: 20160228

REACTIONS (3)
  - Urine odour abnormal [Not Recovered/Not Resolved]
  - Pollakiuria [Not Recovered/Not Resolved]
  - Neuropathy peripheral [Not Recovered/Not Resolved]
